FAERS Safety Report 8853047 (Version 1)
Quarter: 2012Q4

REPORT INFORMATION
  Report Type: 
  Country: US (occurrence: US)
  Receive Date: 20121022
  Receipt Date: 20121022
  Transmission Date: 20130627
  Serious: Yes (Other)
  Sender: FDA-Public Use
  Company Number: US-ROCHE-1131478

PATIENT
  Sex: Male

DRUGS (6)
  1. RITUXAN [Suspect]
     Indication: BURKITT^S LYMPHOMA
     Route: 065
  2. RITUXAN [Suspect]
     Indication: OFF LABEL USE
  3. CYCLOPHOSPHAMIDE [Concomitant]
  4. HYDROXYDAUNORUBICIN [Concomitant]
  5. VINCRISTINE [Concomitant]
  6. PREDNISONE [Concomitant]

REACTIONS (3)
  - Renal failure [Unknown]
  - Hypotension [Unknown]
  - Back pain [Unknown]
